FAERS Safety Report 4970073-6 (Version None)
Quarter: 2006Q2

REPORT INFORMATION
  Report Type: 
  Country: None (occurrence: None)
  Receive Date: 20060406
  Receipt Date: 20060309
  Transmission Date: 20061013
  Serious: Yes (Life-Threatening, Hospitalization, Other)
  Sender: FDA-Public Use
  Company Number: 200611017BWH

PATIENT
  Age: 77 Year
  Sex: Male
  Weight: 97.5234 kg

DRUGS (11)
  1. SORAFENIB [Suspect]
     Indication: METASTATIC RENAL CELL CARCINOMA
     Dosage: 400 MG, BID, ORAL
     Route: 048
     Dates: start: 20050914, end: 20060215
  2. MAXZIDE [Concomitant]
  3. HYTRIN [Concomitant]
  4. METOPROLOL [Concomitant]
  5. LEXAPRO [Concomitant]
  6. INSULIN [Concomitant]
  7. AVASTIN [Concomitant]
  8. DALTEPARIN [Concomitant]
  9. IMODIUM [Concomitant]
  10. COUMADIN [Concomitant]
  11. FRAGMIN [Concomitant]

REACTIONS (21)
  - ANAEMIA [None]
  - ARTHRALGIA [None]
  - ATELECTASIS [None]
  - BLOOD CALCIUM DECREASED [None]
  - BLOOD PRESSURE INCREASED [None]
  - CARDIOMEGALY [None]
  - CONTUSION [None]
  - DIARRHOEA [None]
  - DRUG EFFECT DECREASED [None]
  - ECCHYMOSIS [None]
  - GASTROINTESTINAL DISORDER [None]
  - HAEMATOMA [None]
  - HYPERCOAGULATION [None]
  - INJECTION SITE PAIN [None]
  - KYPHOSIS [None]
  - NAUSEA [None]
  - ORAL INTAKE REDUCED [None]
  - PLEURAL EFFUSION [None]
  - RENAL CYST [None]
  - RENAL FAILURE [None]
  - VOMITING [None]
